FAERS Safety Report 9005174 (Version 1)
Quarter: 2013Q1

REPORT INFORMATION
  Report Type: Spontaneous
  Country: US (occurrence: None)
  Receive Date: 20130107
  Receipt Date: 20130107
  Transmission Date: 20140127
  Serious: No
  Sender: FDA-Public Use
  Company Number: None

PATIENT
  Age: 44 Year
  Sex: Male
  Weight: 104.33 kg

DRUGS (1)
  1. AMPHETAMINE SULFATE\DEXTROAMPHETAMINE [Suspect]
     Dosage: 30MG 2 TIMES DAILY PO
     Route: 048
     Dates: start: 20120103, end: 20120105

REACTIONS (3)
  - Malaise [None]
  - Vomiting [None]
  - Headache [None]
